FAERS Safety Report 9563487 (Version 1)
Quarter: 2013Q1

REPORT INFORMATION
  Report Type: Spontaneous
  Country: US (occurrence: None)
  Receive Date: 20121227
  Receipt Date: 20121227
  Transmission Date: 20140127
  Serious: Yes (Hospitalization, Other)
  Sender: FDA-Public Use
  Company Number: PHEH2012US012834

PATIENT
  Sex: Male

DRUGS (2)
  1. EXJADE (*CGP 72670*) [Suspect]
     Indication: IRON OVERLOAD
     Route: 048
     Dates: start: 201109, end: 201205
  2. TRANSFUSIONS ( NO INGREDIENTS/SUBSTANCES) [Concomitant]

REACTIONS (3)
  - Gastrointestinal haemorrhage [None]
  - Depressed mood [None]
  - Fatigue [None]
